FAERS Safety Report 10028268 (Version 1)
Quarter: 2014Q1

REPORT INFORMATION
  Report Type: Spontaneous
  Country: US (occurrence: None)
  Receive Date: 20140318
  Receipt Date: 20140318
  Transmission Date: 20141002
  Serious: Yes (Other)
  Sender: FDA-Public Use
  Company Number: INS201403-000010

PATIENT
  Age: 38 Year
  Sex: Female

DRUGS (2)
  1. SUBSYS [Suspect]
     Indication: BRONCHIAL CARCINOMA
  2. SUBSYS [Suspect]
     Indication: CANCER PAIN

REACTIONS (1)
  - Death [None]
